FAERS Safety Report 9921541 (Version 1)
Quarter: 2014Q1

REPORT INFORMATION
  Report Type: Spontaneous
  Country: US (occurrence: US)
  Receive Date: 20140225
  Receipt Date: 20140225
  Transmission Date: 20141002
  Serious: Yes (Other)
  Sender: FDA-Public Use
  Company Number: US-PFIZER INC-2014049024

PATIENT
  Sex: Female

DRUGS (1)
  1. PREMARIN [Suspect]
     Dosage: 2 G, 2X/WEEK
     Route: 067
     Dates: start: 2013, end: 201312

REACTIONS (2)
  - Hypertension [Unknown]
  - Headache [Unknown]
